FAERS Safety Report 16726555 (Version 1)
Quarter: 2019Q3

REPORT INFORMATION
  Report Type: Spontaneous
  Country: IN (occurrence: IN)
  Receive Date: 20190821
  Receipt Date: 20190821
  Transmission Date: 20191005
  Serious: Yes (Other)
  Sender: FDA-Public Use
  Company Number: IN-ELEFSEE PHARMACEUTICALS INTERNATIONAL-IN-2019WTD000037

PATIENT
  Age: 32 Year
  Sex: Female
  Weight: 36 kg

DRUGS (3)
  1. FENTANYL. [Suspect]
     Active Substance: FENTANYL
     Indication: PAIN
     Dosage: 40 ?G, UNK
     Route: 042
  2. LIGNOCAINE                         /00033401/ [Suspect]
     Active Substance: LIDOCAINE HYDROCHLORIDE
     Dosage: 10 ML, UNK
  3. LIGNOCAINE                         /00033401/ [Suspect]
     Active Substance: LIDOCAINE HYDROCHLORIDE
     Indication: INFILTRATION ANAESTHESIA
     Dosage: 10 ML, UNK

REACTIONS (1)
  - Seizure [Recovered/Resolved]
